FAERS Safety Report 7435194-7 (Version None)
Quarter: 2011Q2

REPORT INFORMATION
  Report Type: 
  Country: None (occurrence: None)
  Receive Date: 20110425
  Receipt Date: 20110412
  Transmission Date: 20111010
  Serious: Yes (Hospitalization)
  Sender: FDA-Public Use
  Company Number: CH-ASTRAZENECA-2011SE21178

PATIENT
  Age: 62 Year
  Sex: Male

DRUGS (8)
  1. DAFALGAN [Concomitant]
     Route: 048
  2. ZESTRIL [Suspect]
     Route: 048
     Dates: end: 20100302
  3. CALCIUM D3-MEPHA [Concomitant]
     Dosage: 1200MG/800 IU DAILY
     Route: 048
  4. SPIRALGIN [Suspect]
     Route: 048
     Dates: end: 20100302
  5. CONDROSULF [Concomitant]
     Route: 048
     Dates: end: 20100302
  6. NEURONTIN [Concomitant]
     Route: 048
     Dates: end: 20100302
  7. SEROQUEL XR [Concomitant]
     Route: 048
     Dates: end: 20100302
  8. CITALOPRAM [Concomitant]
     Route: 048
     Dates: end: 20100302

REACTIONS (6)
  - GASTROENTERITIS [None]
  - HYPOKALAEMIA [None]
  - BLOOD SODIUM INCREASED [None]
  - ELECTROLYTE IMBALANCE [None]
  - RENAL FAILURE ACUTE [None]
  - ACIDOSIS HYPERCHLORAEMIC [None]
